FAERS Safety Report 9093233 (Version 1)
Quarter: 2013Q1

REPORT INFORMATION
  Report Type: Spontaneous
  Country: US (occurrence: None)
  Receive Date: 20130213
  Receipt Date: 20130213
  Transmission Date: 20140127
  Serious: Yes (Life-Threatening, Hospitalization, Disabling)
  Sender: FDA-Public Use
  Company Number: None

PATIENT
  Age: 61 Year
  Sex: Male
  Weight: 63.5 kg

DRUGS (6)
  1. HIZENTRA [Suspect]
     Indication: BLOOD IMMUNOGLOBULIN G DECREASED
     Dates: start: 20110912, end: 20120917
  2. HIZENTRA [Suspect]
  3. BENADRYL [Concomitant]
  4. TYLENOL [Concomitant]
  5. KLONOPIN [Concomitant]
  6. STOMECTAL [Concomitant]

REACTIONS (6)
  - Nausea [None]
  - Back pain [None]
  - Chills [None]
  - Pain in extremity [None]
  - Disorientation [None]
  - Loss of consciousness [None]
